FAERS Safety Report 7301789-4 (Version None)
Quarter: 2011Q1

REPORT INFORMATION
  Report Type: 
  Country: None (occurrence: None)
  Receive Date: 20110218
  Receipt Date: 20101206
  Transmission Date: 20110831
  Serious: Yes (Death, Hospitalization)
  Sender: FDA-Public Use
  Company Number: B0688152A

PATIENT
  Age: 68 Year
  Sex: Male

DRUGS (8)
  1. MUCOSTA [Concomitant]
  2. ARTIST [Suspect]
     Indication: CARDIAC FAILURE
     Route: 048
  3. SALOBEL [Suspect]
     Route: 048
  4. LASIX [Suspect]
     Route: 048
  5. DIGOXIN [Concomitant]
  6. LUPRAC [Suspect]
     Indication: CARDIAC FAILURE
     Route: 048
  7. WARFARIN [Concomitant]
  8. DIOVAN [Concomitant]

REACTIONS (3)
  - STRONGYLOIDIASIS [None]
  - DRUG ERUPTION [None]
  - PULMONARY HAEMORRHAGE [None]
